FAERS Safety Report 7709696-X (Version None)
Quarter: 2011Q3

REPORT INFORMATION
  Report Type: 
  Country: None (occurrence: None)
  Receive Date: 20110825
  Receipt Date: 20110816
  Transmission Date: 20111222
  Serious: Yes (Hospitalization)
  Sender: FDA-Public Use
  Company Number: DE-GLAXOSMITHKLINE-B0641020B

PATIENT
  Sex: Female
  Weight: 52 kg

DRUGS (4)
  1. METHYLNALTREXONE BROMIDE [Concomitant]
     Indication: CONSTIPATION
     Dosage: 12MG PER DAY
     Route: 058
     Dates: start: 20100506, end: 20100521
  2. TOPOTECAN [Suspect]
     Indication: OVARIAN CANCER RECURRENT
     Dosage: 1.55MG CYCLIC
     Route: 042
     Dates: start: 20100301
  3. BLINDED TRIAL MEDICATION [Suspect]
     Indication: OVARIAN CANCER
     Dates: start: 20100306
  4. DURAGESIC-100 [Concomitant]
     Indication: BACK PAIN
     Dosage: 25MCG PER DAY
     Dates: start: 20100302

REACTIONS (6)
  - ILEUS [None]
  - SUBILEUS [None]
  - ABDOMINAL PAIN [None]
  - VOMITING [None]
  - ANXIETY [None]
  - FAECALOMA [None]
